FAERS Safety Report 19446241 (Version 1)
Quarter: 2021Q2

REPORT INFORMATION
  Report Type: Spontaneous
  Country: FR (occurrence: FR)
  Receive Date: 20210622
  Receipt Date: 20210622
  Transmission Date: 20210717
  Serious: Yes (Death)
  Sender: FDA-Public Use
  Company Number: FR-ROCHE-2851283

PATIENT
  Age: 42 Year
  Sex: Male

DRUGS (3)
  1. ZOPICLONE [Suspect]
     Active Substance: ZOPICLONE
     Indication: SUICIDE ATTEMPT
     Dosage: 28 CP DE 7.5 MG
     Route: 048
     Dates: start: 20201119, end: 20201119
  2. IZALGI [Suspect]
     Active Substance: ACETAMINOPHEN\OPIUM
     Indication: SUICIDE ATTEMPT
     Dosage: 32 CP
     Route: 065
     Dates: start: 20201119, end: 20201119
  3. VALIUM [Suspect]
     Active Substance: DIAZEPAM
     Indication: SUICIDE ATTEMPT
     Dosage: 40 CP DE 10 MG
     Route: 048
     Dates: start: 20201119, end: 20201119

REACTIONS (2)
  - Toxicity to various agents [Fatal]
  - Hepatitis fulminant [Fatal]

NARRATIVE: CASE EVENT DATE: 20201119
